FAERS Safety Report 9165224 (Version 2)
Quarter: 2013Q1

REPORT INFORMATION
  Report Type: Spontaneous
  Country: JP (occurrence: None)
  Receive Date: 20130227
  Receipt Date: 20130318
  Transmission Date: 20140127
  Serious: Yes (Other)
  Sender: FDA-Public Use
  Company Number: 2013-000504

PATIENT
  Age: 85 Year
  Sex: Female

DRUGS (2)
  1. ACTONEL [Suspect]
     Indication: RAYNAUD^S PHENOMENON
     Route: 048
     Dates: start: 201201
  2. ADALAT L (NIFEDIPINE) [Concomitant]

REACTIONS (3)
  - Extremity necrosis [None]
  - Raynaud^s phenomenon [None]
  - Pain [None]
